FAERS Safety Report 9031499 (Version 1)
Quarter: 2013Q1

REPORT INFORMATION
  Report Type: Report from Study
  Country: US (occurrence: US)
  Receive Date: 20130124
  Receipt Date: 20130124
  Transmission Date: 20140127
  Serious: No
  Sender: FDA-Public Use
  Company Number: US-VERTEX PHARMACEUTICALS INC.-2013-001049

PATIENT
  Sex: Male

DRUGS (10)
  1. VX-950 (TELAPREVIR) [Suspect]
     Indication: HEPATITIS C
     Dosage: 750 MG, TID
     Route: 048
  2. RIBAPAK [Suspect]
     Indication: HEPATITIS C
     Dosage: 1000/DAY
  3. PEGASYS [Suspect]
     Indication: HEPATITIS C
     Dosage: 180 ?G, UNK
  4. CENTRUM SILVER                     /02363801/ [Concomitant]
  5. CELEBREX [Concomitant]
     Dosage: 200 MG, UNK
  6. BENADRYL                           /00000402/ [Concomitant]
     Dosage: 25 MG, UNK
  7. CODEINE SULFATE [Concomitant]
     Dosage: 30 MG, UNK
  8. LYRICA [Concomitant]
     Dosage: 50 MG, UNK
  9. HYDROCHLOROTH [Concomitant]
     Dosage: 50 MG, UNK
  10. KLOR-CON M10 [Concomitant]
     Dosage: 10 MEQ, UNK

REACTIONS (3)
  - Arthralgia [Unknown]
  - Dysphagia [Unknown]
  - Pain in extremity [Unknown]
